FAERS Safety Report 8787030 (Version 2)
Quarter: 2012Q4

REPORT INFORMATION
  Report Type: 
  Country: DE (occurrence: DE)
  Receive Date: 20120914
  Receipt Date: 20120928
  Transmission Date: 20130627
  Serious: Yes (Death, Hospitalization, Congenital Anomaly)
  Sender: FDA-Public Use
  Company Number: PHHY2012DE079775

PATIENT
  Sex: Male

DRUGS (1)
  1. METHADONE [Suspect]
     Route: 064

REACTIONS (16)
  - Death [Fatal]
  - Hypertelorism of orbit [Unknown]
  - Agitation neonatal [Unknown]
  - Pneumonia [Unknown]
  - Infection [Unknown]
  - Convulsion [Unknown]
  - Respiratory tract infection [Unknown]
  - Bronchitis [Unknown]
  - Pyrexia [Unknown]
  - Tachycardia [Unknown]
  - Cardiac arrest [Unknown]
  - Respiratory arrest [Unknown]
  - Drug withdrawal syndrome neonatal [Unknown]
  - Condition aggravated [Unknown]
  - Tachypnoea [Unknown]
  - Foetal exposure during pregnancy [Unknown]
